FAERS Safety Report 7666228-2 (Version None)
Quarter: 2011Q3

REPORT INFORMATION
  Report Type: 
  Country: None (occurrence: None)
  Receive Date: 20110806
  Receipt Date: 20110422
  Transmission Date: 20111222
  Serious: No
  Sender: FDA-Public Use
  Company Number: US-ABBOTT-11P-163-0721257-00

PATIENT
  Sex: Female
  Weight: 64.468 kg

DRUGS (3)
  1. NIASPAN [Suspect]
     Dates: start: 20110401
  2. ATENOLOL [Concomitant]
     Indication: PRODUCT USED FOR UNKNOWN INDICATION
  3. NIASPAN [Suspect]
     Indication: PRODUCT USED FOR UNKNOWN INDICATION
     Dates: start: 20110301, end: 20110401

REACTIONS (1)
  - DIARRHOEA [None]
